FAERS Safety Report 23948186 (Version 1)
Quarter: 2024Q2

REPORT INFORMATION
  Report Type: Spontaneous
  Country: US (occurrence: US)
  Receive Date: 20240607
  Receipt Date: 20240607
  Transmission Date: 20240716
  Serious: No
  Sender: FDA-Public Use
  Company Number: US-HALEON-2180226

PATIENT
  Age: 77 Year

DRUGS (1)
  1. TUMS EXTRA STRENGTH, SMOOTHIES [Suspect]
     Active Substance: CALCIUM CARBONATE
     Indication: Abdominal discomfort
     Dosage: TIME INTERVAL: AS NECESSARY: EXPDATE:201911 EXPDATE:201911?TAKE 5-6 ALL AT ONCE

REACTIONS (3)
  - Intentional overdose [Unknown]
  - Product storage error [Unknown]
  - Expired product administered [Unknown]
